FAERS Safety Report 4502969-3 (Version None)
Quarter: 2004Q4

REPORT INFORMATION
  Report Type: 
  Country: None (occurrence: None)
  Receive Date: 20041112
  Receipt Date: 20041029
  Transmission Date: 20050328
  Serious: Yes (Death, Life-Threatening, Other)
  Sender: FDA-Public Use
  Company Number: 2004059919

PATIENT
  Age: 65 Year
  Sex: Male

DRUGS (9)
  1. CEREBYX [Suspect]
     Indication: CONVULSION
     Dosage: INTRAVENOUS
     Route: 042
     Dates: start: 20040701, end: 20040821
  2. DOPAMINE (DOPAMINE) [Suspect]
     Indication: ILL-DEFINED DISORDER
     Dates: end: 20040821
  3. LORZEPAM (LORAZEPAM) [Concomitant]
  4. INSULIN [Concomitant]
  5. CALCIUM CARBONATE (CALCIUM CARBONATE) [Concomitant]
  6. PARICALCITOL (PARICALCITOL) [Concomitant]
  7. NIMODIPINE (NIMODIPINE) [Concomitant]
  8. PANTOPRAZOLE (PANTOPRAZOLE) [Concomitant]
  9. IMIPENEM (IMIPENEM) [Concomitant]

REACTIONS (16)
  - ARRHYTHMIA [None]
  - ATRIOVENTRICULAR BLOCK FIRST DEGREE [None]
  - BLOOD PRESSURE DECREASED [None]
  - BRADYCARDIA [None]
  - BRAIN DEATH [None]
  - CARDIO-RESPIRATORY ARREST [None]
  - CONVULSION [None]
  - ELECTROCARDIOGRAM QRS COMPLEX PROLONGED [None]
  - ELECTROCARDIOGRAM T WAVE ABNORMAL [None]
  - MENINGITIS [None]
  - METABOLIC ACIDOSIS [None]
  - MULTI-ORGAN FAILURE [None]
  - NODAL RHYTHM [None]
  - PNEUMONIA [None]
  - SINUS TACHYCARDIA [None]
  - VENTRICULAR TACHYCARDIA [None]
